FAERS Safety Report 6073529-0 (Version None)
Quarter: 2009Q1

REPORT INFORMATION
  Report Type: 
  Country: None (occurrence: None)
  Receive Date: 20090211
  Receipt Date: 20090202
  Transmission Date: 20090719
  Serious: Yes (Hospitalization)
  Sender: FDA-Public Use
  Company Number: US-EISAI MEDICAL RESEARCH-E2020-04041-SPO-US

PATIENT
  Sex: Female

DRUGS (2)
  1. ARICEPT [Suspect]
     Indication: DEMENTIA ALZHEIMER'S TYPE
     Route: 048
     Dates: start: 20090101, end: 20090101
  2. ARICEPT [Suspect]
     Route: 048
     Dates: start: 20090101, end: 20090101

REACTIONS (1)
  - MIGRAINE [None]
